FAERS Safety Report 8618731-6 (Version None)
Quarter: 2012Q3

REPORT INFORMATION
  Report Type: 
  Country: None (occurrence: None)
  Receive Date: 20120824
  Receipt Date: 20120814
  Transmission Date: 20120928
  Serious: No
  Sender: FDA-Public Use
  Company Number: US-JNJFOC-20120808370

PATIENT
  Sex: Male

DRUGS (3)
  1. INVEGA SUSTENNA [Suspect]
     Indication: PRODUCT USED FOR UNKNOWN INDICATION
     Route: 030
     Dates: start: 20120601
  2. INVEGA SUSTENNA [Suspect]
     Route: 030
     Dates: start: 20120802
  3. INVEGA SUSTENNA [Suspect]
     Route: 030
     Dates: start: 20110901, end: 20120601

REACTIONS (1)
  - HALLUCINATION, AUDITORY [None]
